FAERS Safety Report 5155176-8 (Version None)
Quarter: 2006Q4

REPORT INFORMATION
  Report Type: 
  Country: None (occurrence: None)
  Receive Date: 20061121
  Receipt Date: 20061110
  Transmission Date: 20070319
  Serious: Yes (Hospitalization)
  Sender: FDA-Public Use
  Company Number: CA-ELI_LILLY_AND_COMPANY-CA200611002901

PATIENT
  Sex: Female

DRUGS (9)
  1. FORTEO [Suspect]
     Indication: OSTEOPOROSIS
     Dosage: 20 UG, DAILY (1/D)
     Dates: start: 20060302
  2. AVALIDE [Concomitant]
     Dosage: 150 MG, 2/D
  3. PHENOBARB [Concomitant]
     Dosage: 100 MG, 2/D
  4. AGGRENOX [Concomitant]
     Dosage: 25 MG, 2/D
  5. FOLIC ACID [Concomitant]
     Dosage: 5 MG, DAILY (1/D)
  6. LOSEC [Concomitant]
     Dosage: 20 MG, 2/D
  7. OSTOFORTE [Concomitant]
     Dosage: 5000 IU, DAILY (1/D)
  8. GRAVOL TAB [Concomitant]
     Dosage: UNK, AS NEEDED
  9. TYLENOL W/ CODEINE NO. 3 [Concomitant]
     Dosage: UNK, AS NEEDED

REACTIONS (4)
  - APHASIA [None]
  - BLOOD URINE PRESENT [None]
  - HAEMOGLOBIN DECREASED [None]
  - TRANSIENT ISCHAEMIC ATTACK [None]
